FAERS Safety Report 13336386 (Version 1)
Quarter: 2017Q1

REPORT INFORMATION
  Report Type: Spontaneous
  Country: US (occurrence: US)
  Receive Date: 20170314
  Receipt Date: 20170314
  Transmission Date: 20170428
  Serious: No
  Sender: FDA-Public Use
  Company Number: US-JAZZ-2016-US-022619

PATIENT
  Sex: Female
  Weight: 51.7 kg

DRUGS (29)
  1. XYREM [Suspect]
     Active Substance: SODIUM OXYBATE
     Indication: SOMNOLENCE
     Dosage: 3.75 G, BID
     Route: 048
     Dates: start: 201602
  2. TOPAMAX [Concomitant]
     Active Substance: TOPIRAMATE
  3. SELEGILINE HCL [Concomitant]
     Active Substance: SELEGILINE HYDROCHLORIDE
  4. TRILEPTAL [Concomitant]
     Active Substance: OXCARBAZEPINE
  5. MSM [Concomitant]
     Active Substance: DIMETHYL SULFONE
  6. QUERCETIN DIHYDRATE [Concomitant]
  7. NUVIGIL [Concomitant]
     Active Substance: ARMODAFINIL
  8. INDERAL [Concomitant]
     Active Substance: PROPRANOLOL HYDROCHLORIDE
  9. TRAMADOL HCL [Concomitant]
     Active Substance: TRAMADOL HYDROCHLORIDE
  10. ACYCLOVIR                          /00587301/ [Concomitant]
     Active Substance: ACYCLOVIR
  11. XYREM [Suspect]
     Active Substance: SODIUM OXYBATE
     Indication: CATAPLEXY
     Dosage: DOSE ADJUSTMENT
     Route: 048
     Dates: start: 2016, end: 2016
  12. ADDERALL [Concomitant]
     Active Substance: AMPHETAMINE ASPARTATE\AMPHETAMINE SULFATE\DEXTROAMPHETAMINE SACCHARATE\DEXTROAMPHETAMINE SULFATE
  13. LYRICA [Concomitant]
     Active Substance: PREGABALIN
  14. CONCERTA [Concomitant]
     Active Substance: METHYLPHENIDATE HYDROCHLORIDE
  15. PROVIGIL [Concomitant]
     Active Substance: MODAFINIL
  16. LAMICTAL [Concomitant]
     Active Substance: LAMOTRIGINE
  17. VALIUM [Concomitant]
     Active Substance: DIAZEPAM
  18. COENZYME Q10 [Concomitant]
     Active Substance: UBIDECARENONE
  19. XANAX [Concomitant]
     Active Substance: ALPRAZOLAM
  20. XYREM [Suspect]
     Active Substance: SODIUM OXYBATE
     Indication: NARCOLEPSY
     Dosage: 2.25 G, BID
     Route: 048
     Dates: start: 201602, end: 2016
  21. NASACORT ALLERGY 24HR [Concomitant]
     Active Substance: TRIAMCINOLONE ACETONIDE
  22. RITALIN [Concomitant]
     Active Substance: METHYLPHENIDATE HYDROCHLORIDE
  23. RHODIOLA                           /02220301/ [Concomitant]
  24. ACYCLOVIR                          /00587301/ [Concomitant]
     Active Substance: ACYCLOVIR
  25. HUMATIN [Concomitant]
     Active Substance: PAROMOMYCIN SULFATE
  26. REMERON [Concomitant]
     Active Substance: MIRTAZAPINE
  27. WELLBUTRIN [Concomitant]
     Active Substance: BUPROPION HYDROCHLORIDE
  28. CURCUMIN [Concomitant]
     Active Substance: CURCUMIN
  29. FISH OIL [Concomitant]
     Active Substance: FISH OIL

REACTIONS (3)
  - Enuresis [Not Recovered/Not Resolved]
  - Therapeutic response unexpected [Unknown]
  - Pre-existing condition improved [Unknown]
